FAERS Safety Report 15834282 (Version 1)
Quarter: 2019Q1

REPORT INFORMATION
  Report Type: Spontaneous
  Country: FR (occurrence: FR)
  Receive Date: 20190116
  Receipt Date: 20190116
  Transmission Date: 20190417
  Serious: Yes (Hospitalization)
  Sender: FDA-Public Use
  Company Number: FR-ELI_LILLY_AND_COMPANY-FR201901006321

PATIENT
  Age: 52 Year
  Sex: Female

DRUGS (3)
  1. ABASAGLAR [Suspect]
     Active Substance: INSULIN GLARGINE
     Indication: TOXICITY TO VARIOUS AGENTS
     Dosage: 3 DF, UNKNOWN
     Route: 058
     Dates: start: 20181219
  2. ALPRAZOLAM. [Suspect]
     Active Substance: ALPRAZOLAM
     Indication: TOXICITY TO VARIOUS AGENTS
     Dosage: 12 DF, UNKNOWN
     Route: 048
     Dates: start: 20181219
  3. VICTOZA [Suspect]
     Active Substance: LIRAGLUTIDE
     Indication: TOXICITY TO VARIOUS AGENTS
     Dosage: 2 DF, UNKNOWN
     Route: 058
     Dates: start: 20181219

REACTIONS (3)
  - Hypoglycaemia [Recovered/Resolved]
  - Toxicity to various agents [Recovered/Resolved]
  - Somnolence [Recovered/Resolved]

NARRATIVE: CASE EVENT DATE: 20181219
